FAERS Safety Report 6356334-7 (Version None)
Quarter: 2009Q3

REPORT INFORMATION
  Report Type: 
  Country: None (occurrence: None)
  Receive Date: 20090915
  Receipt Date: 20090903
  Transmission Date: 20100115
  Serious: Yes (Hospitalization, Disabling, Other)
  Sender: FDA-Public Use
  Company Number: US-PFIZER INC-2008095226

PATIENT
  Sex: Female
  Weight: 95 kg

DRUGS (5)
  1. SUNITINIB MALATE [Suspect]
     Indication: BREAST CANCER METASTATIC
     Dosage: 25 MG, 1X/DAY
     Route: 048
     Dates: start: 20080523, end: 20081106
  2. VITACAL [Concomitant]
     Dosage: 600 MG, UNK
     Route: 048
     Dates: start: 20080227
  3. HYDROCORTISONE [Concomitant]
     Dosage: UNK
     Route: 061
     Dates: start: 20081013
  4. PERCOCET [Concomitant]
     Dosage: UNK
     Route: 048
     Dates: start: 20080915
  5. DYAZIDE [Concomitant]
     Dosage: UNK
     Route: 048
     Dates: start: 20081103

REACTIONS (2)
  - DYSPNOEA [None]
  - PLEURAL EFFUSION [None]
